FAERS Safety Report 9563935 (Version 4)
Quarter: 2013Q4

REPORT INFORMATION
  Report Type: Report from Study
  Country: FR (occurrence: FR)
  Receive Date: 20130928
  Receipt Date: 20131107
  Transmission Date: 20140711
  Serious: Yes (Death)
  Sender: FDA-Public Use
  Company Number: FR-ROCHE-1282322

PATIENT
  Sex: 0

DRUGS (1)
  1. ALTEPLASE [Suspect]
     Indication: ISCHAEMIC STROKE
     Route: 042

REACTIONS (2)
  - Cardiopulmonary failure [Fatal]
  - Pulmonary embolism [Fatal]
